FAERS Safety Report 8144176 (Version 2)
Quarter: 2014Q3

REPORT INFORMATION
  Report Type: Spontaneous
  Country: US (occurrence: US)
  Receive Date: 20110920
  Receipt Date: 20140715
  Transmission Date: 20150326
  Serious: Yes (Death, Hospitalization, Other)
  Sender: FDA-Public Use
  Company Number: US-ROCHE-779605

PATIENT
  Age: 21 Year
  Sex: Male
  Weight: 97.5 kg

DRUGS (4)
  1. CLINDAMYCIN [Concomitant]
     Active Substance: CLINDAMYCIN\CLINDAMYCIN PHOSPHATE
     Indication: ACNE
     Route: 065
  2. ACCUTANE [Suspect]
     Active Substance: ISOTRETINOIN
     Indication: ACNE
     Dosage: FREQUENCY: QD
     Route: 048
     Dates: start: 20000112, end: 200005
  3. ACCUTANE [Suspect]
     Active Substance: ISOTRETINOIN
     Route: 048
  4. ACCUTANE [Suspect]
     Active Substance: ISOTRETINOIN
     Route: 048

REACTIONS (14)
  - Colitis ulcerative [Unknown]
  - Pelvic abscess [Unknown]
  - Colon cancer metastatic [Fatal]
  - Liver function test abnormal [Recovered/Resolved]
  - Arthritis [Unknown]
  - Rectal haemorrhage [Unknown]
  - Irritable bowel syndrome [Unknown]
  - Abdominal pain [Unknown]
  - Dry eye [Unknown]
  - Intestinal obstruction [Unknown]
  - Depression [Unknown]
  - Iron deficiency anaemia [Unknown]
  - Inflammatory bowel disease [Unknown]
  - Lip dry [Unknown]

NARRATIVE: CASE EVENT DATE: 20000112
